FAERS Safety Report 4819782-X (Version None)
Quarter: 2005Q4

REPORT INFORMATION
  Report Type: 
  Country: None (occurrence: None)
  Receive Date: 20051102
  Receipt Date: 20051021
  Transmission Date: 20060501
  Serious: Yes (Hospitalization, Other)
  Sender: FDA-Public Use
  Company Number: 2005137676

PATIENT
  Age: 59 Year
  Sex: Female
  Weight: 149.687 kg

DRUGS (9)
  1. CELEBREX [Suspect]
     Indication: ARTHRITIS
     Dosage: 200 MG (200 MG, 1 IN 1 D)
     Dates: start: 20020101
  2. ALL OTHER THERAPEUTIC PRODUCTS [Concomitant]
  3. PROZAC [Concomitant]
  4. TYLENOL W/ CODEINE NO. 3 [Concomitant]
  5. ALL OTHER THERAPEUTIC PRODUCTS [Concomitant]
  6. DITROPAN [Concomitant]
  7. WARFARIN [Concomitant]
  8. PRIMIDONE [Concomitant]
  9. TOPAMAX [Concomitant]

REACTIONS (9)
  - ABASIA [None]
  - BLOOD CHOLESTEROL INCREASED [None]
  - CARDIAC FAILURE CONGESTIVE [None]
  - CHRONIC OBSTRUCTIVE PULMONARY DISEASE [None]
  - DIALYSIS [None]
  - HYPERTENSION [None]
  - MITRAL VALVE DISEASE [None]
  - MYOCARDIAL INFARCTION [None]
  - RENAL FAILURE [None]
